FAERS Safety Report 4863183-5 (Version None)
Quarter: 2005Q4

REPORT INFORMATION
  Report Type: 
  Country: None (occurrence: None)
  Receive Date: 20051201
  Receipt Date: 20050725
  Transmission Date: 20060501
  Serious: No
  Sender: FDA-Public Use
  Company Number: 2005PV000517

PATIENT
  Age: 59 Year
  Sex: Female
  Weight: 89.3586 kg

DRUGS (6)
  1. BYETTA [Suspect]
     Indication: DIABETES MELLITUS NON-INSULIN-DEPENDENT
     Dosage: 5 MCG;BID;SC
     Route: 058
     Dates: start: 20050713
  2. LANTUS [Concomitant]
  3. DIOVAN [Concomitant]
  4. KELP [Concomitant]
  5. THYROFINE [Concomitant]
  6. CATAPLEX C [Concomitant]

REACTIONS (5)
  - BACK PAIN [None]
  - BLADDER PAIN [None]
  - CYSTITIS [None]
  - NAUSEA [None]
  - RENAL PAIN [None]
